FAERS Safety Report 7904997-4 (Version None)
Quarter: 2011Q4

REPORT INFORMATION
  Report Type: 
  Country: None (occurrence: None)
  Receive Date: 20111109
  Receipt Date: 20111103
  Transmission Date: 20120403
  Serious: Yes (Hospitalization)
  Sender: FDA-Public Use
  Company Number: PHEH2011US008546

PATIENT
  Age: 42 Year
  Sex: Female

DRUGS (10)
  1. FLUTICASONE PROPIONATE [Concomitant]
     Indication: CYSTIC FIBROSIS
  2. ALBUTEROL [Concomitant]
     Indication: CYSTIC FIBROSIS
     Route: 045
  3. BUDESONIDE [Concomitant]
     Indication: CYSTIC FIBROSIS
  4. LANTUS [Suspect]
     Indication: CYSTIC FIBROSIS RELATED DIABETES
     Dosage: 1300 U, DAILY
     Route: 058
  5. CYCLOSPORINE [Suspect]
     Indication: PROPHYLAXIS AGAINST TRANSPLANT REJECTION
  6. PULMOZYME [Concomitant]
     Indication: CYSTIC FIBROSIS
     Dosage: UNK UKN, UNK
  7. NOVOLOG [Concomitant]
     Indication: CYSTIC FIBROSIS RELATED DIABETES
     Dosage: 100 U/ML, PRN
     Dates: start: 20090226
  8. TACROLIMUS [Concomitant]
     Indication: PROPHYLAXIS AGAINST TRANSPLANT REJECTION
     Dosage: 8 MG, QD
     Dates: start: 20090429
  9. AZITHROMYCIN [Concomitant]
     Indication: CYSTIC FIBROSIS
  10. METHYLPREDNISOLONE [Concomitant]
     Indication: PROPHYLAXIS AGAINST TRANSPLANT REJECTION

REACTIONS (2)
  - INTESTINAL OBSTRUCTION [None]
  - CYTOMEGALOVIRUS INFECTION [None]
